FAERS Safety Report 6030208-3 (Version None)
Quarter: 2009Q1

REPORT INFORMATION
  Report Type: 
  Country: None (occurrence: None)
  Receive Date: 20090107
  Receipt Date: 20080825
  Transmission Date: 20090719
  Serious: No
  Sender: FDA-Public Use
  Company Number: US-BAYER-200813547BCC

PATIENT
  Age: 33 Year
  Sex: Male
  Weight: 73 kg

DRUGS (2)
  1. ALEVE (CAPLET) [Suspect]
     Indication: HEADACHE
     Dosage: AS USED: 440 MG  UNIT DOSE: 220 MG
     Dates: start: 20080825
  2. IBUPROFEN TABLETS [Suspect]
     Indication: HEADACHE
     Dates: start: 20080825

REACTIONS (1)
  - NAUSEA [None]
